FAERS Safety Report 6928105-1 (Version None)
Quarter: 2010Q3

REPORT INFORMATION
  Report Type: 
  Country: None (occurrence: None)
  Receive Date: 20100817
  Receipt Date: 20100716
  Transmission Date: 20110219
  Serious: Yes (Death, Hospitalization, Other)
  Sender: FDA-Public Use
  Company Number: PHEH2006US01246

PATIENT
  Sex: Female
  Weight: 48.073 kg

DRUGS (30)
  1. ZOMETA [Suspect]
     Indication: METASTASES TO BONE
     Dosage: 4 MG, MONTHLY
     Dates: start: 20011206, end: 20040427
  2. ZOMETA [Suspect]
     Dosage: 4 MG, MONTHLY
     Dates: start: 20060228, end: 20070115
  3. AREDIA [Suspect]
     Dosage: 60 MG MONTHLY
     Route: 042
     Dates: start: 20040824, end: 20050725
  4. AREDIA [Suspect]
     Dosage: 30 MG, MONTHLY
     Route: 042
     Dates: start: 20050726, end: 20060119
  5. XELODA [Concomitant]
     Indication: BREAST CANCER METASTATIC
     Dosage: 500 MG, TID
     Route: 048
     Dates: start: 20040413
  6. PROZAC [Concomitant]
     Indication: DEPRESSION
     Dosage: 20 MG, QD
     Route: 048
  7. WELLBUTRIN [Concomitant]
     Indication: DEPRESSION
     Route: 048
  8. ARIMIDEX [Concomitant]
     Indication: METASTASES TO BONE
     Dosage: UNK, QD
     Route: 048
     Dates: start: 20011115, end: 20040224
  9. NAPROSYN [Concomitant]
  10. HYDROCODONE BITARTRATE [Concomitant]
     Dosage: 750 MG, PRN
     Route: 048
  11. ALBUTEROL [Concomitant]
     Dosage: UNK, PRN
  12. TAMOXIFEN CITRATE [Concomitant]
     Indication: BREAST CANCER
  13. MEGACE [Concomitant]
     Dates: start: 20040201
  14. GEMZAR [Concomitant]
     Dates: start: 20041227
  15. TAXOTERE [Concomitant]
     Dosage: 40 MG, UNK
     Dates: start: 20041227
  16. ARANESP [Concomitant]
     Dates: start: 20050110
  17. CYTOXAN [Concomitant]
     Indication: BREAST CANCER
     Dates: start: 20060209
  18. ZOLOFT [Concomitant]
     Indication: BREAST CANCER
     Dosage: 10 MG, BID
  19. SYNTHROID [Concomitant]
     Dosage: 0.1 MG, QD
     Route: 048
  20. DOXEPIN HCL [Concomitant]
     Dosage: 0.1 MG, QD
     Route: 048
  21. CARBOPLATIN [Concomitant]
     Dosage: 300 MG, UNK
     Dates: start: 20061220
  22. FOSAMAX [Concomitant]
     Dosage: 10 MG
  23. DAYPRO [Concomitant]
  24. IBUPROFEN [Concomitant]
  25. ASPIRIN [Concomitant]
  26. LEVOTHROID [Concomitant]
  27. TRAZODONE HCL [Concomitant]
  28. VITAMIN B6 [Concomitant]
  29. MULTI-VITAMINS [Concomitant]
  30. SPIRIVA [Concomitant]

REACTIONS (55)
  - ANAEMIA [None]
  - ARTHRALGIA [None]
  - BACK PAIN [None]
  - BIOPSY BLADDER ABNORMAL [None]
  - BIOPSY SKIN ABNORMAL [None]
  - BONE DEBRIDEMENT [None]
  - BONE DENSITY DECREASED [None]
  - BONE DISORDER [None]
  - BONE EROSION [None]
  - BONE LESION [None]
  - BONE SCAN ABNORMAL [None]
  - BREAST CANCER [None]
  - CARPAL TUNNEL SYNDROME [None]
  - DEATH [None]
  - DECREASED APPETITE [None]
  - EXCESSIVE GRANULATION TISSUE [None]
  - FEMORAL NECK FRACTURE [None]
  - FLUID REPLACEMENT [None]
  - FOLLICULITIS [None]
  - GINGIVAL BLEEDING [None]
  - GINGIVAL DISORDER [None]
  - HEADACHE [None]
  - HIP FRACTURE [None]
  - HYPERBARIC OXYGEN THERAPY [None]
  - HYPOAESTHESIA [None]
  - HYPOTHYROIDISM [None]
  - IMPAIRED HEALING [None]
  - IMPAIRED WORK ABILITY [None]
  - INTERVERTEBRAL DISC DEGENERATION [None]
  - MALIGNANT NEOPLASM PROGRESSION [None]
  - MASS EXCISION [None]
  - METASTASIS [None]
  - MOBILITY DECREASED [None]
  - NAUSEA [None]
  - NUCLEAR MAGNETIC RESONANCE IMAGING ABNORMAL [None]
  - ORAL CANDIDIASIS [None]
  - OSTEOARTHRITIS [None]
  - OSTEOMYELITIS [None]
  - OSTEONECROSIS OF JAW [None]
  - OSTEOPENIA [None]
  - PAIN IN EXTREMITY [None]
  - PAIN IN JAW [None]
  - PHYSIOTHERAPY [None]
  - POSTURE ABNORMAL [None]
  - RADIOTHERAPY [None]
  - SPINAL DECOMPRESSION [None]
  - SURGERY [None]
  - SWELLING FACE [None]
  - TENDON DISORDER [None]
  - THROMBOSIS [None]
  - TOOTH EXTRACTION [None]
  - VISION BLURRED [None]
  - VOMITING [None]
  - WEIGHT DECREASED [None]
  - WRIST FRACTURE [None]
